FAERS Safety Report 5366455-3 (Version None)
Quarter: 2007Q2

REPORT INFORMATION
  Report Type: 
  Country: None (occurrence: None)
  Receive Date: 20070622
  Receipt Date: 20070618
  Transmission Date: 20071010
  Serious: Yes (Hospitalization, Disabling)
  Sender: FDA-Public Use
  Company Number: JP-BRISTOL-MYERS SQUIBB COMPANY-13820048

PATIENT
  Age: 95 Year
  Sex: Female

DRUGS (1)
  1. MAXIPIME [Suspect]
     Indication: PNEUMONIA ASPIRATION
     Route: 041
     Dates: start: 20070613, end: 20070614

REACTIONS (3)
  - CONVULSION [None]
  - DEPRESSED LEVEL OF CONSCIOUSNESS [None]
  - STRABISMUS [None]
